FAERS Safety Report 21524371 (Version 1)
Quarter: 2022Q4

REPORT INFORMATION
  Report Type: Report from Study
  Country: US (occurrence: US)
  Receive Date: 20221029
  Receipt Date: 20221029
  Transmission Date: 20230112
  Serious: Yes (Other)
  Sender: FDA-Public Use
  Company Number: US-NOVARTISPH-NVSC2022US243279

PATIENT
  Sex: Female

DRUGS (1)
  1. PROMACTA [Suspect]
     Active Substance: ELTROMBOPAG OLAMINE
     Indication: Product used for unknown indication
     Dosage: 75 MG, PRN
     Route: 048

REACTIONS (3)
  - Lymphoma [Not Recovered/Not Resolved]
  - Throat irritation [Not Recovered/Not Resolved]
  - Speech disorder [Not Recovered/Not Resolved]
